FAERS Safety Report 8857241 (Version 2)
Quarter: 2012Q4

REPORT INFORMATION
  Report Type: 
  Country: CA (occurrence: CA)
  Receive Date: 20121024
  Receipt Date: 20121116
  Transmission Date: 20130627
  Serious: Yes (Other)
  Sender: FDA-Public Use
  Company Number: CA-BAYER-2012-107942

PATIENT
  Age: 47 Year
  Sex: Female
  Weight: 65 kg

DRUGS (5)
  1. MIRENA [Suspect]
     Indication: MENORRHAGIA
     Dosage: 20 mcg/24hr, CONT
     Route: 015
     Dates: start: 201209, end: 20121013
  2. MIRENA [Suspect]
     Indication: MENORRHAGIA
     Dosage: 20 mcg/24hr, UNK
     Route: 015
     Dates: start: 20121013
  3. HYDROXYZINE [Concomitant]
     Dosage: 25 mg, UNK
     Route: 048
  4. AMLODIPINE [Concomitant]
     Dosage: 5 mg, UNK
     Route: 048
  5. TOPIRAMATE [Concomitant]
     Dosage: 25 mg, UNK
     Route: 048

REACTIONS (4)
  - Haemorrhagic anaemia [None]
  - Cervical polyp [None]
  - Device expulsion [None]
  - Menorrhagia [None]
